FAERS Safety Report 8025687 (Version 4)
Quarter: 2012Q4

REPORT INFORMATION
  Report Type: 
  Country: US (occurrence: US)
  Receive Date: 20110707
  Receipt Date: 20121228
  Transmission Date: 20130627
  Serious: Yes (Other)
  Sender: FDA-Public Use
  Company Number: US-ASTRAZENECA-2011SE39467

PATIENT
  Age: 61 Year
  Sex: Female

DRUGS (4)
  1. CRESTOR [Suspect]
     Route: 048
  2. CRESTOR [Suspect]
     Dosage: GENERIC
     Route: 048
  3. TRICOR [Concomitant]
  4. LIPITOR [Concomitant]

REACTIONS (5)
  - Cerebrovascular accident [Unknown]
  - Drug dose omission [Unknown]
  - Impaired work ability [Unknown]
  - Blood cholesterol increased [Unknown]
  - Amnesia [Unknown]
